FAERS Safety Report 11546475 (Version 1)
Quarter: 2015Q3

REPORT INFORMATION
  Report Type: Spontaneous
  Country: US (occurrence: US)
  Receive Date: 20150903
  Receipt Date: 20150903
  Transmission Date: 20151125
  Serious: No
  Sender: FDA-Public Use
  Company Number: US-ELI_LILLY_AND_COMPANY-US201110003009

PATIENT
  Sex: Female
  Weight: 68.48 kg

DRUGS (2)
  1. NPH INSULIN [Concomitant]
     Active Substance: INSULIN BEEF
     Indication: GESTATIONAL DIABETES
     Dosage: UNK
     Dates: end: 20110830
  2. HUMALOG [Suspect]
     Active Substance: INSULIN LISPRO
     Indication: GESTATIONAL DIABETES
     Dosage: UNK
     Dates: end: 20110830

REACTIONS (2)
  - Hypersensitivity [Not Recovered/Not Resolved]
  - Exposure during pregnancy [Recovered/Resolved]
